FAERS Safety Report 9331061 (Version 2)
Quarter: 2013Q3

REPORT INFORMATION
  Report Type: Spontaneous
  Country: AU (occurrence: AU)
  Receive Date: 20130605
  Receipt Date: 20130712
  Transmission Date: 20140515
  Serious: Yes (Hospitalization, Other)
  Sender: FDA-Public Use
  Company Number: AU-009507513-1305AUS017227

PATIENT
  Sex: Female

DRUGS (1)
  1. ESMERON [Suspect]
     Indication: MAMMOPLASTY
     Dosage: 0.5 MG/KG, ONCE
     Dates: start: 20130522

REACTIONS (5)
  - Myocardial infarction [Unknown]
  - Blood pressure abnormal [Unknown]
  - Circulatory collapse [Unknown]
  - Bradycardia [Unknown]
  - Anaphylactic reaction [Unknown]
